FAERS Safety Report 12555986 (Version 1)
Quarter: 2016Q3

REPORT INFORMATION
  Report Type: Spontaneous
  Country: US (occurrence: US)
  Receive Date: 20160714
  Receipt Date: 20160714
  Transmission Date: 20161109
  Serious: No
  Sender: FDA-Public Use
  Company Number: US-BEH-2016071111

PATIENT
  Sex: Female
  Weight: 133.33 kg

DRUGS (33)
  1. OXYGEN. [Concomitant]
     Active Substance: OXYGEN
  2. NORVASC [Concomitant]
     Active Substance: AMLODIPINE BESYLATE
  3. ACETAMINOPHEN. [Concomitant]
     Active Substance: ACETAMINOPHEN
  4. SINGULAIR [Concomitant]
     Active Substance: MONTELUKAST SODIUM
  5. LEVEMIR [Concomitant]
     Active Substance: INSULIN DETEMIR
  6. PROVENTIL HFA                      /00139501/ [Concomitant]
  7. IPRATROPIUM/ALBUTEROL [Concomitant]
     Active Substance: ALBUTEROL\IPRATROPIUM
  8. VITAMIN C [Concomitant]
     Active Substance: ASCORBIC ACID
  9. VALIUM [Concomitant]
     Active Substance: DIAZEPAM
  10. LEVAQUIN [Concomitant]
     Active Substance: LEVOFLOXACIN
  11. PENICILLIN VK [Concomitant]
     Active Substance: PENICILLIN V POTASSIUM
  12. MULTIVITAMINS [Concomitant]
     Active Substance: VITAMINS
  13. HIZENTRA [Suspect]
     Active Substance: HUMAN IMMUNOGLOBULIN G
     Indication: STATUS ASTHMATICUS
     Dosage: UNK
     Route: 058
  14. OMEPRAZOLE. [Concomitant]
     Active Substance: OMEPRAZOLE
  15. BENZONATATE. [Concomitant]
     Active Substance: BENZONATATE
  16. HIZENTRA [Suspect]
     Active Substance: HUMAN IMMUNOGLOBULIN G
     Indication: IMMUNODEFICIENCY COMMON VARIABLE
     Dosage: 18 G, QW
     Route: 058
  17. ANTIBIOTIC                         /00011701/ [Concomitant]
     Active Substance: UNSPECIFIED INGREDIENT
  18. CIPROFLOXACIN. [Concomitant]
     Active Substance: CIPROFLOXACIN
  19. MEDROL [Concomitant]
     Active Substance: METHYLPREDNISOLONE
  20. ALEVE [Concomitant]
     Active Substance: NAPROXEN SODIUM
  21. GLUCOSAMINE + CHONDROITIN          /01430901/ [Concomitant]
  22. EPIPEN [Concomitant]
     Active Substance: EPINEPHRINE
  23. GLIMEPIRIDE. [Concomitant]
     Active Substance: GLIMEPIRIDE
  24. FENOFIBRATE. [Concomitant]
     Active Substance: FENOFIBRATE
  25. HIZENTRA [Suspect]
     Active Substance: HUMAN IMMUNOGLOBULIN G
     Indication: RHINITIS ALLERGIC
     Dosage: UNK
     Route: 058
  26. DIPHENHYDRAMINE. [Concomitant]
     Active Substance: DIPHENHYDRAMINE
  27. LIDOCAINE/PRILOCAINE [Concomitant]
     Active Substance: LIDOCAINE\PRILOCAINE
  28. VICODIN [Concomitant]
     Active Substance: ACETAMINOPHEN\HYDROCODONE BITARTRATE
  29. ASPIRIN. [Concomitant]
     Active Substance: ASPIRIN
  30. BUSPIRONE HCL [Concomitant]
     Active Substance: BUSPIRONE HYDROCHLORIDE
  31. VICTOZA [Concomitant]
     Active Substance: LIRAGLUTIDE
  32. NOVOLOG [Concomitant]
     Active Substance: INSULIN ASPART
  33. CRESTOR [Concomitant]
     Active Substance: ROSUVASTATIN CALCIUM

REACTIONS (1)
  - Dyspnoea [Unknown]
